FAERS Safety Report 4686861-X (Version None)
Quarter: 2005Q2

REPORT INFORMATION
  Report Type: 
  Country: None (occurrence: None)
  Receive Date: 20050609
  Receipt Date: 20050310
  Transmission Date: 20051028
  Serious: Yes (Death, Hospitalization, Disabling)
  Sender: FDA-Public Use
  Company Number: US-MERCK-0503USA01930

PATIENT
  Age: 62 Year
  Sex: Female
  Weight: 91 kg

DRUGS (3)
  1. VIOXX [Suspect]
     Route: 048
     Dates: start: 20020101
  2. VIOXX [Suspect]
     Route: 048
     Dates: end: 20040816
  3. CARDURA [Concomitant]
     Route: 065
     Dates: start: 20000101

REACTIONS (12)
  - ARTHROPATHY [None]
  - BLOOD CHOLESTEROL INCREASED [None]
  - BRAIN STEM INFARCTION [None]
  - CEREBRAL INFARCTION [None]
  - EMOTIONAL DISTRESS [None]
  - HEPATIC STEATOSIS [None]
  - LEUKOCYTOSIS [None]
  - LIVER FUNCTION TEST ABNORMAL [None]
  - NEUROLOGICAL SYMPTOM [None]
  - NEUROPATHY PERIPHERAL [None]
  - OVERDOSE [None]
  - SUBCLAVIAN ARTERY STENOSIS [None]
